FAERS Safety Report 13840953 (Version 2)
Quarter: 2017Q3

REPORT INFORMATION
  Report Type: Spontaneous
  Country: FR (occurrence: FR)
  Receive Date: 20170807
  Receipt Date: 20170823
  Transmission Date: 20171127
  Serious: Yes (Death, Congenital Anomaly)
  Sender: FDA-Public Use
  Company Number: FR-PFIZER INC-2017333269

PATIENT
  Weight: .57 kg

DRUGS (4)
  1. TAHOR [Suspect]
     Active Substance: ATORVASTATIN CALCIUM
     Dosage: UNK
     Route: 064
  2. PLAVIX [Suspect]
     Active Substance: CLOPIDOGREL BISULFATE
     Dosage: UNK
     Route: 064
  3. LEXOMIL [Suspect]
     Active Substance: BROMAZEPAM
     Dosage: 1 TO 2 BOXES DAILY
     Route: 064
  4. IKOREL [Suspect]
     Active Substance: NICORANDIL
     Dosage: UNK
     Route: 064

REACTIONS (4)
  - Microcephaly [Fatal]
  - Maternal exposure during pregnancy [Fatal]
  - Foetal growth restriction [Fatal]
  - Oligohydramnios [Fatal]

NARRATIVE: CASE EVENT DATE: 20140325
